FAERS Safety Report 10181599 (Version 2)
Quarter: 2014Q2

REPORT INFORMATION
  Report Type: Spontaneous
  Country: GB (occurrence: GB)
  Receive Date: 20140519
  Receipt Date: 20140624
  Transmission Date: 20141212
  Serious: Yes (Other)
  Sender: FDA-Public Use
  Company Number: GB-PFIZER INC-2014135607

PATIENT
  Age: 64 Year
  Sex: Female
  Weight: 57 kg

DRUGS (3)
  1. LYRICA [Suspect]
     Indication: ANXIETY
     Dosage: 75 MG, 2X/DAY
     Route: 048
     Dates: start: 20140506, end: 20140613
  2. VENLAFAXINE [Concomitant]
     Dosage: 187.5 MG, UNK
     Route: 048
     Dates: start: 20131227
  3. DIAZEPAM [Concomitant]
     Dosage: 10 MG, UNK
     Route: 048
     Dates: start: 20131227

REACTIONS (5)
  - Deafness [Recovering/Resolving]
  - Dizziness [Recovering/Resolving]
  - Tinnitus [Recovering/Resolving]
  - Nasal congestion [Recovering/Resolving]
  - Ear disorder [Recovering/Resolving]
